FAERS Safety Report 18074051 (Version 1)
Quarter: 2020Q3

REPORT INFORMATION
  Report Type: Report from Study
  Country: EG (occurrence: EG)
  Receive Date: 20200727
  Receipt Date: 20200727
  Transmission Date: 20201103
  Serious: Yes (Other)
  Sender: FDA-Public Use
  Company Number: EG-SEATTLE GENETICS-2020SGN03182

PATIENT
  Sex: Female

DRUGS (1)
  1. BRENTUXIMAB VEDOTIN [Suspect]
     Active Substance: BRENTUXIMAB VEDOTIN
     Indication: HODGKIN^S DISEASE
     Dosage: UNK, Q3WEEKS
     Route: 042
     Dates: start: 20191221, end: 20200719

REACTIONS (1)
  - Hodgkin^s disease [Unknown]
